FAERS Safety Report 6910582-3 (Version None)
Quarter: 2010Q3

REPORT INFORMATION
  Report Type: 
  Country: None (occurrence: None)
  Receive Date: 20100806
  Receipt Date: 20100727
  Transmission Date: 20110219
  Serious: Yes (Other)
  Sender: FDA-Public Use
  Company Number: FR-PFIZER INC-2010093762

PATIENT
  Sex: Male

DRUGS (2)
  1. LYRICA [Suspect]
     Indication: SCIATICA
     Dosage: UNK
  2. LAMICTAL [Concomitant]
     Indication: MYOCLONIC EPILEPSY
     Dosage: UNK

REACTIONS (1)
  - MYOCLONIC EPILEPSY [None]
